FAERS Safety Report 5128252-3 (Version None)
Quarter: 2006Q4

REPORT INFORMATION
  Report Type: 
  Country: None (occurrence: None)
  Receive Date: 20061011
  Receipt Date: 20060921
  Transmission Date: 20070319
  Serious: Yes (Death)
  Sender: FDA-Public Use
  Company Number: 2006RR-03838

PATIENT
  Age: 67 Year
  Sex: Male

DRUGS (4)
  1. CLARITHROMYCIN [Suspect]
     Indication: UPPER RESPIRATORY TRACT INFECTION
     Dosage: 500 MG, TID
  2. COLCHICINE (COLCICINE) [Suspect]
     Indication: PERITONEAL DIALYSIS
  3. ERYTHROPOIETIN (ERYTHROPOIETIN) [Concomitant]
  4. CALCIUM CARBONATE (CALCIUM CARBONATE) [Concomitant]

REACTIONS (6)
  - ABDOMINAL PAIN [None]
  - DIARRHOEA [None]
  - DRUG INTERACTION [None]
  - DRUG TOXICITY [None]
  - MYALGIA [None]
  - PYREXIA [None]
